FAERS Safety Report 8247592-2 (Version None)
Quarter: 2012Q1

REPORT INFORMATION
  Report Type: 
  Country: None (occurrence: None)
  Receive Date: 20120330
  Receipt Date: 20120322
  Transmission Date: 20120608
  Serious: Yes (Other)
  Sender: FDA-Public Use
  Company Number: PHHY2012ES015809

PATIENT
  Age: 39 Year
  Sex: Male

DRUGS (8)
  1. ASPIRIN [Concomitant]
     Dosage: 100 MG/DAY
  2. ACENOCOUMAROL [Concomitant]
     Dosage: 3 MG/DAY
  3. ATENOLOL [Concomitant]
     Dosage: 25 MG/12 HOURS
  4. LOSARTAN POTASSIUM [Concomitant]
     Dosage: 50 MG/DAY
  5. HYDROCHLOROTHIAZIDE [Concomitant]
     Dosage: 25 MG, PER DAY
  6. AMLODIPINE [Concomitant]
     Dosage: 5 MG/DAY
  7. OMEPRAZOLE [Suspect]
     Dosage: 40 MG, PER DAY
  8. SIMVASTATIN [Concomitant]
     Dosage: 20 MG/DAY

REACTIONS (9)
  - MUSCLE CONTRACTIONS INVOLUNTARY [None]
  - BLOOD POTASSIUM DECREASED [None]
  - DIARRHOEA [None]
  - HYPOAESTHESIA [None]
  - TETANY [None]
  - HYPOMAGNESAEMIA [None]
  - MUSCLE SPASMS [None]
  - BLOOD PHOSPHORUS DECREASED [None]
  - BLOOD CALCIUM DECREASED [None]
